FAERS Safety Report 8868738 (Version 1)
Quarter: 2012Q4

REPORT INFORMATION
  Report Type: 
  Country: US (occurrence: US)
  Receive Date: 20121026
  Receipt Date: 20121026
  Transmission Date: 20130627
  Serious: No
  Sender: FDA-Public Use
  Company Number: US-AMGEN-USASP2012047612

PATIENT
  Sex: Female

DRUGS (17)
  1. ENBREL [Suspect]
     Indication: PRODUCT USED FOR UNKNOWN INDICATION
     Dosage: 50 mg, qwk
     Route: 058
  2. CYMBALTA [Concomitant]
     Dosage: 20 mg, UNK
  3. SINGULAIR [Concomitant]
     Dosage: 10 mg, UNK
  4. PROTONIX [Concomitant]
     Dosage: 40 mg, UNK
  5. METHOTREXATE [Concomitant]
     Dosage: 2.5 mg, UNK
  6. VIVELLE-DOT [Concomitant]
     Dosage: 0.025 mg, UNK
  7. ALLEGRA [Concomitant]
     Dosage: 180 mg, UNK
  8. TRAMADOL [Concomitant]
     Dosage: 50 mg, UNK
  9. ETODOLAC [Concomitant]
     Dosage: 500 mg, UNK
  10. FLONASE [Concomitant]
     Dosage: 0.05 %, UNK
  11. ADVAIR [Concomitant]
     Dosage: 250/50
  12. DOXYCYCLINE MONOHYDRATE [Concomitant]
     Dosage: 50 mg, UNK
  13. BENICAR [Concomitant]
     Dosage: 40 mg, UNK
  14. PROAIR HFA [Concomitant]
     Dosage: UNK
  15. MULTIVITAMIN                       /00097801/ [Concomitant]
  16. FOLIC ACID [Concomitant]
  17. ASPIRE [Concomitant]
     Dosage: 81 mg, UNK

REACTIONS (1)
  - Infection [Unknown]
